FAERS Safety Report 7352905-X (Version None)
Quarter: 2011Q1

REPORT INFORMATION
  Report Type: 
  Country: None (occurrence: None)
  Receive Date: 20110315
  Receipt Date: 20110311
  Transmission Date: 20110831
  Serious: Yes (Other)
  Sender: FDA-Public Use
  Company Number: VE-ROCHE-764844

PATIENT
  Sex: Female
  Weight: 67 kg

DRUGS (9)
  1. TAXOL [Concomitant]
     Indication: BREAST CANCER
     Dosage: FREQ: CYCLIC
     Route: 042
     Dates: start: 20101001
  2. XELODA [Suspect]
     Indication: BREAST CANCER
     Dosage: FREQUENCY: DAY
     Route: 048
     Dates: start: 20100124
  3. AVASTIN [Suspect]
     Indication: BREAST CANCER
     Dosage: FREQ: CYCLIC
     Route: 042
     Dates: start: 20101001
  4. CLOROTRIMETON [Concomitant]
     Dosage: FREQ: CYCLIC
  5. ONICIT [Concomitant]
     Indication: BREAST CANCER
     Dosage: FREQ: CYCLIC
     Route: 042
     Dates: start: 20101001
  6. DEXAMETHASONE [Concomitant]
     Indication: BREAST CANCER
     Dosage: FREQ: CYCLIC
     Route: 042
     Dates: start: 20101001
  7. RANITIDINE [Concomitant]
     Indication: BREAST CANCER
     Dosage: FREQ: CYCLIC
     Route: 042
     Dates: start: 20101001
  8. HYDROCORTISONE [Concomitant]
     Indication: BREAST CANCER
     Dosage: FREQ: CYCLIC
     Route: 042
     Dates: start: 20101001
  9. EMEND [Concomitant]
     Dosage: FREQ: CYCLIC

REACTIONS (3)
  - PAIN IN EXTREMITY [None]
  - PARESIS [None]
  - PALMAR-PLANTAR ERYTHRODYSAESTHESIA SYNDROME [None]
